FAERS Safety Report 6678025-5 (Version None)
Quarter: 2010Q2

REPORT INFORMATION
  Report Type: 
  Country: None (occurrence: None)
  Receive Date: 20100409
  Receipt Date: 20100409
  Transmission Date: 20101027
  Serious: No
  Sender: FDA-Public Use
  Company Number: None

PATIENT
  Age: 73 Year
  Sex: Female
  Weight: 75.7507 kg

DRUGS (1)
  1. RISPERDAL [Suspect]

REACTIONS (3)
  - DIZZINESS [None]
  - HYPOAESTHESIA [None]
  - NAUSEA [None]
